FAERS Safety Report 11639368 (Version 1)
Quarter: 2015Q4

REPORT INFORMATION
  Report Type: Spontaneous
  Country: CL (occurrence: CL)
  Receive Date: 20151019
  Receipt Date: 20151019
  Transmission Date: 20160304
  Serious: Yes (Death, Life-Threatening, Other)
  Sender: FDA-Public Use
  Company Number: CL-ACCORD-034563

PATIENT
  Age: 52 Year
  Sex: Female

DRUGS (3)
  1. ETOPOSIDE. [Suspect]
     Active Substance: ETOPOSIDE
     Indication: OVARIAN GRANULOSA CELL TUMOUR
  2. BLEOMYCIN [Suspect]
     Active Substance: BLEOMYCIN SULFATE
     Indication: OVARIAN GRANULOSA CELL TUMOUR
     Dosage: DOSE: 15 UNITS ON DAY 1
  3. CISPLATIN. [Suspect]
     Active Substance: CISPLATIN
     Indication: OVARIAN GRANULOSA CELL TUMOUR
     Dosage: ON DAY 1-5, GIVEN EVERY 3 WEEKS FOR 3 CYCLES

REACTIONS (2)
  - Drug intolerance [Unknown]
  - Bone marrow toxicity [Unknown]
